FAERS Safety Report 9676910 (Version 1)
Quarter: 2013Q4

REPORT INFORMATION
  Report Type: Spontaneous
  Country: CA (occurrence: CA)
  Receive Date: 20131107
  Receipt Date: 20131107
  Transmission Date: 20140711
  Serious: Yes (Death, Other)
  Sender: FDA-Public Use
  Company Number: CA-ROCHE-1297428

PATIENT
  Age: 45 Year
  Sex: Female

DRUGS (7)
  1. XELODA [Suspect]
     Indication: PRODUCT USED FOR UNKNOWN INDICATION
     Route: 065
  2. TYKERB [Suspect]
     Indication: PRODUCT USED FOR UNKNOWN INDICATION
     Dosage: THERAPY DURATION:  355.0 DAYS
     Route: 048
  3. DEXAMETHASONE [Concomitant]
  4. LYRICA [Concomitant]
  5. OXYCODONE [Concomitant]
  6. RANITIDINE [Concomitant]
  7. SENOKOT [Concomitant]

REACTIONS (13)
  - Asthenia [Fatal]
  - Breast cancer metastatic [Fatal]
  - Decreased appetite [Fatal]
  - Defaecation urgency [Fatal]
  - Fatigue [Fatal]
  - Full blood count abnormal [Fatal]
  - Malaise [Fatal]
  - Malignant neoplasm progression [Fatal]
  - Nasopharyngitis [Fatal]
  - Nausea [Fatal]
  - Oropharyngeal pain [Fatal]
  - Pain in extremity [Fatal]
  - Weight decreased [Fatal]
